FAERS Safety Report 8265083-X (Version None)
Quarter: 2012Q2

REPORT INFORMATION
  Report Type: 
  Country: None (occurrence: None)
  Receive Date: 20120406
  Receipt Date: 20120327
  Transmission Date: 20120825
  Serious: Yes (Hospitalization)
  Sender: FDA-Public Use
  Company Number: FR-ROCHE-1043100

PATIENT
  Sex: Male

DRUGS (7)
  1. FENTANYL [Concomitant]
  2. ROVAMYCINE [Suspect]
     Indication: PRODUCT USED FOR UNKNOWN INDICATION
     Route: 042
     Dates: start: 20120114
  3. BACTRIM [Concomitant]
     Route: 042
     Dates: start: 20120114, end: 20120115
  4. PANTOPRAZOLE SODIUM [Suspect]
     Indication: PRODUCT USED FOR UNKNOWN INDICATION
     Route: 042
     Dates: start: 20120114, end: 20120120
  5. ROCEPHIN [Suspect]
     Indication: PRODUCT USED FOR UNKNOWN INDICATION
     Route: 042
     Dates: start: 20120114
  6. MIDAZOLAM [Concomitant]
  7. CISATRACURIUM BESYLATE [Concomitant]

REACTIONS (3)
  - EOSINOPHILIA [None]
  - RENAL FAILURE ACUTE [None]
  - THROMBOCYTOPENIA [None]
